FAERS Safety Report 13299508 (Version 1)
Quarter: 2017Q1

REPORT INFORMATION
  Report Type: Spontaneous
  Country: FR (occurrence: FR)
  Receive Date: 20170306
  Receipt Date: 20170306
  Transmission Date: 20170428
  Serious: Yes (Other)
  Sender: FDA-Public Use
  Company Number: FR-PFIZER INC-2017091358

PATIENT
  Age: 34 Year
  Sex: Female

DRUGS (8)
  1. BACTRIM [Suspect]
     Active Substance: SULFAMETHOXAZOLE\TRIMETHOPRIM
     Dosage: 3 DF, WEEKLY
     Route: 048
     Dates: start: 20161122
  2. NEORAL [Suspect]
     Active Substance: CYCLOSPORINE
     Dosage: 175 MG, DAILY
     Route: 048
     Dates: start: 20161122
  3. VALACICLOVIR [Suspect]
     Active Substance: VALACYCLOVIR HYDROCHLORIDE
     Dosage: 2 DF, DAILY
     Route: 048
     Dates: start: 20161122
  4. SPASFON /00765801/ [Concomitant]
     Active Substance: PHLOROGLUCINOL\1,3,5-TRIMETHOXYBENZENE
     Dosage: UNK
     Dates: start: 20161122
  5. XANAX [Concomitant]
     Active Substance: ALPRAZOLAM
     Dosage: UNK
     Dates: start: 20161122
  6. TRIFLUCAN [Suspect]
     Active Substance: FLUCONAZOLE
     Dosage: 2 DF, DAILY
     Route: 048
     Dates: start: 20161122
  7. AMOXICILLIN. [Suspect]
     Active Substance: AMOXICILLIN
     Dosage: 1.50 G, UNK
     Route: 048
     Dates: start: 20161122
  8. ACUPAN [Concomitant]
     Active Substance: NEFOPAM HYDROCHLORIDE
     Dosage: UNK
     Dates: start: 20161122

REACTIONS (3)
  - Decreased appetite [Unknown]
  - Hyponatraemia [Unknown]
  - Diarrhoea [Unknown]

NARRATIVE: CASE EVENT DATE: 20161122
